FAERS Safety Report 6484263-7 (Version None)
Quarter: 2009Q4

REPORT INFORMATION
  Report Type: 
  Country: None (occurrence: None)
  Receive Date: 20091123
  Receipt Date: 20090917
  Transmission Date: 20100525
  Serious: No
  Sender: FDA-Public Use
  Company Number: 8052232

PATIENT
  Age: 28 Year
  Sex: Female
  Weight: 97.7 kg

DRUGS (4)
  1. CIMZIA [Suspect]
     Indication: CROHN'S DISEASE
     Dosage: 400 MG SC
     Route: 058
     Dates: start: 20090601
  2. CYMBALTA [Concomitant]
  3. TRAZODONE HCL [Concomitant]
  4. XANAX [Concomitant]

REACTIONS (1)
  - AMENORRHOEA [None]
